FAERS Safety Report 21237600 (Version 5)
Quarter: 2022Q4

REPORT INFORMATION
  Report Type: Report from Study
  Country: CN (occurrence: CN)
  Receive Date: 20220822
  Receipt Date: 20221219
  Transmission Date: 20230112
  Serious: Yes (Other)
  Sender: FDA-Public Use
  Company Number: CN-TAKEDA-2022TUS057159

PATIENT
  Age: 42 Year
  Sex: Male
  Weight: 51 kg

DRUGS (14)
  1. VEDOLIZUMAB [Suspect]
     Active Substance: VEDOLIZUMAB
     Indication: Colitis ulcerative
     Dosage: 300 MILLIGRAM
     Route: 042
     Dates: start: 20220726, end: 20220806
  2. MESALAMINE [Concomitant]
     Active Substance: MESALAMINE
     Indication: Inflammatory bowel disease
     Dosage: UNK
     Dates: start: 2020
  3. L-ALANYL-L-GLUTAMINE [Concomitant]
     Indication: Gastrointestinal disorder prophylaxis
     Dosage: 50 MILLILITER, QD
     Route: 042
     Dates: start: 20220722, end: 20220805
  4. PHLOROGLUCINOL [Concomitant]
     Active Substance: PHLOROGLUCINOL
     Indication: Muscle spasms
     Dosage: 80 MILLIGRAM, BID
     Route: 042
     Dates: start: 20220729, end: 20220729
  5. DROTAVERINE HYDROCHLORIDE [Concomitant]
     Active Substance: DROTAVERINE HYDROCHLORIDE
     Indication: Pyrexia
     Dosage: 40 MILLIGRAM, QD
     Route: 042
     Dates: start: 20220729, end: 20220729
  6. MESALAMINE [Concomitant]
     Active Substance: MESALAMINE
     Indication: Inflammatory bowel disease
     Dosage: 4 GRAM, QD
     Route: 054
     Dates: start: 20220723, end: 20220729
  7. MESALAMINE [Concomitant]
     Active Substance: MESALAMINE
     Indication: Inflammatory bowel disease
     Dosage: 4 GRAM, QD
     Route: 048
     Dates: start: 20220724, end: 20220801
  8. MESALAMINE [Concomitant]
     Active Substance: MESALAMINE
     Dosage: 4 GRAM, QD
     Route: 048
     Dates: start: 20220806
  9. POTASSIUM CHLORIDE [Concomitant]
     Active Substance: POTASSIUM CHLORIDE
     Indication: Mineral supplementation
     Dosage: 2 GRAM, QD
     Route: 048
     Dates: start: 20220728, end: 20220728
  10. ALDIOXA [Concomitant]
     Active Substance: ALDIOXA
     Indication: Gastrointestinal disorder prophylaxis
     Dosage: 0.2 GRAM, TID
     Route: 048
     Dates: start: 20220728, end: 20220801
  11. CEFOPERAZONE SODIUM\SULBACTAM SODIUM [Concomitant]
     Active Substance: CEFOPERAZONE SODIUM\SULBACTAM SODIUM
     Indication: Haemorrhage prophylaxis
     Dosage: 2 GRAM, Q12H
     Route: 042
     Dates: start: 20220804, end: 20220804
  12. Compound glutamine [Concomitant]
     Indication: Inflammatory bowel disease
     Dosage: 0.4 GRAM, TID
     Route: 048
     Dates: start: 20220806
  13. METRONIDAZOLE [Concomitant]
     Active Substance: METRONIDAZOLE
     Indication: Inflammatory bowel disease
     Dosage: 0.2 GRAM, TID
     Route: 048
     Dates: start: 20220806
  14. MOXIFLOXACIN [Concomitant]
     Active Substance: MOXIFLOXACIN
     Indication: Inflammatory bowel disease
     Dosage: 400 MILLIGRAM, QD
     Route: 048
     Dates: start: 20220806

REACTIONS (1)
  - Megacolon [Recovered/Resolved]

NARRATIVE: CASE EVENT DATE: 20220728
